FAERS Safety Report 8305547-3 (Version None)
Quarter: 2012Q2

REPORT INFORMATION
  Report Type: 
  Country: None (occurrence: None)
  Receive Date: 20120418
  Receipt Date: 20120405
  Transmission Date: 20120825
  Serious: Yes (Hospitalization)
  Sender: FDA-Public Use
  Company Number: 2012AP000880

PATIENT
  Age: 48 Year
  Sex: Female

DRUGS (6)
  1. HALOPERIDOL [Concomitant]
  2. OLANZAPINE [Concomitant]
  3. HALOPERIDOL [Concomitant]
  4. CLOZAPINE [Concomitant]
  5. OLANZAPINE [Suspect]
     Indication: SCHIZOPHRENIA, CATATONIC TYPE
     Dosage: 10 MG;PO
     Route: 048
  6. LORAZEPAM [Suspect]
     Indication: PRODUCT USED FOR UNKNOWN INDICATION
     Dosage: 4.5 MG ; 2 MG;QD

REACTIONS (2)
  - HYPOTHERMIA [None]
  - OXYGEN SATURATION DECREASED [None]
